APPROVED DRUG PRODUCT: CHILDREN'S CETIRIZINE HYDROCHLORIDE ALLERGY
Active Ingredient: CETIRIZINE HYDROCHLORIDE
Strength: 5MG/5ML
Dosage Form/Route: SOLUTION;ORAL
Application: A204226 | Product #001
Applicant: PERRIGO R AND D CO
Approved: Sep 9, 2013 | RLD: No | RS: No | Type: OTC